FAERS Safety Report 6095089-0 (Version None)
Quarter: 2009Q1

REPORT INFORMATION
  Report Type: 
  Country: None (occurrence: None)
  Receive Date: 20090227
  Receipt Date: 20080116
  Transmission Date: 20090719
  Serious: No
  Sender: FDA-Public Use
  Company Number: A0703642A

PATIENT
  Age: 54 Year
  Sex: Female

DRUGS (10)
  1. LAMICTAL [Suspect]
     Indication: BIPOLAR DISORDER
     Dosage: 200MG PER DAY
     Route: 048
     Dates: start: 20061001, end: 20070101
  2. LEVOTHYROXINE SODIUM [Concomitant]
  3. LISINOPRIL [Concomitant]
  4. MOBIC [Concomitant]
  5. ALLEGRA D 24 HOUR [Concomitant]
  6. SINGULAIR [Concomitant]
  7. GLUCOTROL XL [Concomitant]
  8. CRESTOR [Concomitant]
  9. AMBIEN [Concomitant]
  10. SEROQUEL [Concomitant]

REACTIONS (4)
  - ALOPECIA [None]
  - INSOMNIA [None]
  - TINNITUS [None]
  - WEIGHT DECREASED [None]
